FAERS Safety Report 6595268-X (Version None)
Quarter: 2010Q1

REPORT INFORMATION
  Report Type: 
  Country: None (occurrence: None)
  Receive Date: 20100212
  Receipt Date: 20100129
  Transmission Date: 20100710
  Serious: No
  Sender: FDA-Public Use
  Company Number: 20097316

PATIENT
  Sex: Female

DRUGS (1)
  1. LIORESAL [Suspect]
     Indication: MUSCLE SPASTICITY
     Dosage: 1280.8 - 663.2 MCG, DAILY, INTRATHE
     Route: 037

REACTIONS (11)
  - ALLODYNIA [None]
  - DEPRESSION [None]
  - DYSTONIA [None]
  - GASTROINTESTINAL ULCER [None]
  - GLOSSODYNIA [None]
  - LUMBAR RADICULOPATHY [None]
  - MEMORY IMPAIRMENT [None]
  - NUCLEAR MAGNETIC RESONANCE IMAGING BRAIN ABNORMAL [None]
  - ORAL DISCOMFORT [None]
  - PAIN OF SKIN [None]
  - PARANEOPLASTIC SYNDROME [None]
